FAERS Safety Report 4470515-9 (Version None)
Quarter: 2004Q4

REPORT INFORMATION
  Report Type: 
  Country: None (occurrence: None)
  Receive Date: 20041005
  Receipt Date: 20041005
  Transmission Date: 20050328
  Serious: Yes (Hospitalization)
  Sender: FDA-Public Use
  Company Number: None

PATIENT
  Sex: Male

DRUGS (11)
  1. IBUPROFEN [Suspect]
     Indication: OSTEOARTHRITIS
     Dosage: 800 MG TID ORAL
     Route: 048
     Dates: start: 20031201, end: 20040404
  2. COMBIVENT [Concomitant]
  3. DOCUSATE [Concomitant]
  4. FLUNISOLIDE [Concomitant]
  5. FUROSEMIDE [Concomitant]
  6. MORPHINE [Concomitant]
  7. OMEPRAZOLE [Concomitant]
  8. PROPRANOLOL [Concomitant]
  9. SENNA [Concomitant]
  10. SPIRONOLACTONE [Concomitant]
  11. CO-TRIMOXAZOLE [Concomitant]

REACTIONS (1)
  - HAEMATEMESIS [None]
